FAERS Safety Report 8016594-3 (Version None)
Quarter: 2011Q4

REPORT INFORMATION
  Report Type: 
  Country: None (occurrence: None)
  Receive Date: 20111230
  Receipt Date: 20111222
  Transmission Date: 20120403
  Serious: Yes (Other)
  Sender: FDA-Public Use
  Company Number: US-ASTRAZENECA-2011SE47349

PATIENT
  Age: 88 Year
  Sex: Female

DRUGS (1)
  1. ARIMIDEX [Suspect]
     Route: 048

REACTIONS (3)
  - HERNIA [None]
  - POSTOPERATIVE HERNIA [None]
  - ABDOMINAL HERNIA OBSTRUCTIVE [None]
